FAERS Safety Report 9769486 (Version 1)
Quarter: 2013Q4

REPORT INFORMATION
  Report Type: Spontaneous
  Country: IT (occurrence: IT)
  Receive Date: 20131218
  Receipt Date: 20131218
  Transmission Date: 20140711
  Serious: Yes (Hospitalization)
  Sender: FDA-Public Use
  Company Number: IT-009507513-1312ITA006893

PATIENT
  Age: 57 Year
  Sex: Female

DRUGS (2)
  1. ADROVANCE [Suspect]
     Indication: OSTEOPOROSIS
     Dosage: 70 MG, QW
     Route: 048
     Dates: start: 20110401, end: 20130401
  2. TAZOCIN [Concomitant]
     Indication: ANTIBIOTIC PROPHYLAXIS
     Dosage: 2 G, UNK
     Route: 030
     Dates: start: 20130716

REACTIONS (1)
  - Periodontitis [Unknown]
